FAERS Safety Report 4284464-2 (Version None)
Quarter: 2004Q1

REPORT INFORMATION
  Report Type: 
  Country: None (occurrence: None)
  Receive Date: 20040121
  Receipt Date: 20040106
  Transmission Date: 20041129
  Serious: Yes (Other)
  Sender: FDA-Public Use
  Company Number: USA040155902

PATIENT
  Age: 79 Year
  Sex: Female

DRUGS (13)
  1. FORTEO [Suspect]
     Dates: start: 20021231
  2. COLLACE (DOCUSATE SODIUM) [Concomitant]
  3. SULAR [Concomitant]
  4. ACIPHEX [Concomitant]
  5. PENTA-TRIAMTERENE HCTZ [Concomitant]
  6. SOTALOL HCL [Concomitant]
  7. DIOVAN [Concomitant]
  8. CALCIUM WITH VITAMIN D [Concomitant]
  9. CENTRUM [Concomitant]
  10. ACETYLSALICYLIC ACID SRT [Concomitant]
  11. XALATAN [Concomitant]
  12. CLINDAMYCIN [Concomitant]
  13. ULTRACET [Concomitant]

REACTIONS (8)
  - BLOODY DISCHARGE [None]
  - ERYTHEMA [None]
  - INDURATION [None]
  - PAIN [None]
  - PELVIC FRACTURE [None]
  - PRURITUS [None]
  - PURULENCE [None]
  - SWELLING [None]
